FAERS Safety Report 5007106-7 (Version None)
Quarter: 2006Q1

REPORT INFORMATION
  Report Type: 
  Country: None (occurrence: None)
  Receive Date: 20060320
  Receipt Date: 20050621
  Transmission Date: 20060701
  Serious: Yes (Other)
  Sender: FDA-Public Use
  Company Number: 2005-06-1307

PATIENT
  Age: 38 Year
  Sex: Male
  Weight: 103.4201 kg

DRUGS (2)
  1. PEG-INTRON [Suspect]
     Dosage: 150 MCG QWK SUBCUTANEOUS
     Route: 058
     Dates: start: 20050412
  2. REBETOL [Suspect]
     Dosage: ORAL
     Route: 048

REACTIONS (3)
  - DEAFNESS [None]
  - EAR PAIN [None]
  - MYALGIA [None]
